FAERS Safety Report 9263291 (Version 1)
Quarter: 2013Q2

REPORT INFORMATION
  Report Type: Spontaneous
  Country: US (occurrence: US)
  Receive Date: 20130429
  Receipt Date: 20130429
  Transmission Date: 20140414
  Serious: Yes (Hospitalization, Other)
  Sender: FDA-Public Use
  Company Number: US-RB-052737-13

PATIENT
  Age: 0 None
  Sex: 0

DRUGS (3)
  1. SUBOXONE [Suspect]
     Indication: DRUG DEPENDENCE
     Route: 064
     Dates: start: 20051008, end: 20051208
  2. SUBUTEX [Suspect]
     Indication: DRUG DEPENDENCE
     Dosage: MOTHER TOOK 2 MG, WEANED TEMPORARILY AND THEN RESUMED  2 MG (TAKING 1/2 TWICE DAILY)
     Route: 064
     Dates: start: 20051208, end: 20060702
  3. SUBUTEX [Suspect]
     Dosage: MOTHER TOOK 2 MG, 3/4 PILL PER DAY,TRIED TO REDUCE DOSAGE AND THEN INCREASED DOSE
     Route: 063
     Dates: start: 20050703

REACTIONS (4)
  - Foetal exposure during pregnancy [Recovered/Resolved]
  - Transient tachypnoea of the newborn [Recovered/Resolved]
  - Exposure during breast feeding [Unknown]
  - Irritability [Recovered/Resolved]
